FAERS Safety Report 10721880 (Version 1)
Quarter: 2015Q1

REPORT INFORMATION
  Report Type: Spontaneous
  Country: US (occurrence: US)
  Receive Date: 20150119
  Receipt Date: 20150119
  Transmission Date: 20150721
  Serious: No
  Sender: FDA-Public Use
  Company Number: US-BAUSCH-BL-2014-003125

PATIENT
  Age: 84 Year
  Sex: Female

DRUGS (4)
  1. LOTEMAX EYE DROP [Concomitant]
     Indication: PRODUCT USED FOR UNKNOWN INDICATION
  2. GENTEAL MILD [Concomitant]
     Active Substance: HYPROMELLOSE 2910 (4000 MPA.S)
     Indication: PRODUCT USED FOR UNKNOWN INDICATION
  3. ALAWAY [Suspect]
     Active Substance: KETOTIFEN FUMARATE
     Indication: LACRIMATION INCREASED
  4. ALAWAY [Suspect]
     Active Substance: KETOTIFEN FUMARATE
     Indication: PRURITUS
     Route: 061
     Dates: start: 201406

REACTIONS (2)
  - Drug ineffective [Not Recovered/Not Resolved]
  - Eye irritation [Unknown]

NARRATIVE: CASE EVENT DATE: 201406
